FAERS Safety Report 4383002-3 (Version None)
Quarter: 2004Q2

REPORT INFORMATION
  Report Type: 
  Country: None (occurrence: None)
  Receive Date: 20040603
  Receipt Date: 20040511
  Transmission Date: 20050107
  Serious: No
  Sender: FDA-Public Use
  Company Number: WAES0403USA00566

PATIENT
  Age: 56 Year
  Sex: Female
  Weight: 127.9144 kg

DRUGS (10)
  1. ZETIA [Suspect]
     Indication: BLOOD CHOLESTEROL INCREASED
     Dosage: 10 MG, DAILY, PO
     Route: 048
     Dates: start: 20030627, end: 20030804
  2. HUMALOG [Concomitant]
  3. HUMULIN N [Concomitant]
  4. LASIX [Concomitant]
  5. MEVACOR [Concomitant]
  6. PRINIVIL [Concomitant]
  7. WELLBUTRIN SR [Concomitant]
  8. NIFEDIPINE [Concomitant]
  9. POTASSIUM CHLORIDE [Concomitant]
  10. TRAZODONE HCL [Concomitant]

REACTIONS (2)
  - PITTING OEDEMA [None]
  - WEIGHT INCREASED [None]
